FAERS Safety Report 9089571 (Version 1)
Quarter: 2013Q1

REPORT INFORMATION
  Report Type: Report from Study
  Country: US (occurrence: US)
  Receive Date: 20130218
  Receipt Date: 20130218
  Transmission Date: 20140127
  Serious: No
  Sender: FDA-Public Use
  Company Number: US-ABBOTT-12P-163-0950264-00

PATIENT
  Sex: Male
  Weight: 73.09 kg

DRUGS (4)
  1. SIMCOR 500MG/40MG [Suspect]
     Indication: CEREBROVASCULAR ACCIDENT
     Dosage: 500/40 MG AT BEDTIME
     Dates: start: 201201
  2. OTHER UNKNOWN MEDICATIONS [Concomitant]
     Indication: PRODUCT USED FOR UNKNOWN INDICATION
  3. PLAVIX [Concomitant]
     Indication: PRODUCT USED FOR UNKNOWN INDICATION
  4. ASA [Concomitant]
     Indication: PRODUCT USED FOR UNKNOWN INDICATION

REACTIONS (1)
  - Hyperhidrosis [Recovering/Resolving]
